FAERS Safety Report 19145357 (Version 3)
Quarter: 2024Q2

REPORT INFORMATION
  Report Type: Report from Study
  Country: SE (occurrence: SE)
  Receive Date: 20210416
  Receipt Date: 20240403
  Transmission Date: 20240716
  Serious: Yes (Life-Threatening, Other)
  Sender: FDA-Public Use
  Company Number: SE-CELLTRION INC.-2021SE004886

PATIENT

DRUGS (6)
  1. RITUXIMAB [Suspect]
     Active Substance: RITUXIMAB
     Indication: Immunosuppressant drug therapy
     Dosage: SINGLE DOSE (375 MG/M2) ON DAY+1
  2. ATG-FRESENIUS [Suspect]
     Active Substance: LAPINE T-LYMPHOCYTE IMMUNE GLOBULIN
     Indication: Allogenic stem cell transplantation
     Dosage: 30 MG/KG FROM DAY -12 TO DAY -10 (ATG30)
  3. CLOFARABINE [Suspect]
     Active Substance: CLOFARABINE
     Indication: Allogenic stem cell transplantation
     Dosage: 200 MG/M2 (CLO200)
  4. THIOTEPA [Suspect]
     Active Substance: THIOTEPA
     Indication: Allogenic stem cell transplantation
     Dosage: 10 MG/KG (TT10)
  5. MELPHALAN [Suspect]
     Active Substance: MELPHALAN
     Indication: Allogenic stem cell transplantation
     Dosage: 120 MG/M2 (MEL120)
  6. MYCOPHENOLATE MOFETIL [Concomitant]
     Active Substance: MYCOPHENOLATE MOFETIL
     Indication: Graft versus host disease
     Dosage: GIVEN FROM DAY -1 TO DAY +28 IF THE NUMBER OF RESIDUAL TCR AB+ CELLS IN THE GRAFT EXCEEDED 2.5 X 10^

REACTIONS (7)
  - Thrombocytopenia [Unknown]
  - Neutropenia [Unknown]
  - Acute graft versus host disease in skin [Unknown]
  - Viral infection [Unknown]
  - Pyrexia [Unknown]
  - Pancytopenia [Unknown]
  - Intentional product use issue [Unknown]
